FAERS Safety Report 7420606-5 (Version None)
Quarter: 2011Q2

REPORT INFORMATION
  Report Type: 
  Country: None (occurrence: None)
  Receive Date: 20110418
  Receipt Date: 20110415
  Transmission Date: 20111010
  Serious: Yes (Hospitalization)
  Sender: FDA-Public Use
  Company Number: US-PFIZER INC-2009159828

PATIENT
  Sex: Male

DRUGS (11)
  1. LORAZEPAM [Concomitant]
     Dosage: UNK
     Route: 048
     Dates: start: 20081111
  2. DECADRON [Concomitant]
     Dosage: UNK
     Route: 048
     Dates: start: 20081111
  3. MARINOL [Concomitant]
     Indication: DECREASED APPETITE
     Dosage: UNK MG, 1X/DAY
     Dates: start: 20081028
  4. FLUOROURACIL [Suspect]
     Indication: COLORECTAL CANCER
     Dosage: 820 MG, OTO, Q14D
     Route: 040
     Dates: start: 20081014
  5. MS CONTIN [Concomitant]
     Indication: ABDOMINAL PAIN
     Dosage: 1 TAB, PRN
     Dates: start: 20080124
  6. LORTAB [Concomitant]
     Indication: ABDOMINAL PAIN
     Dosage: 1 TAB, PRN
     Dates: start: 20080724
  7. LOMOTIL [Concomitant]
     Indication: DIARRHOEA
     Dosage: 1 TAB, PRN
     Dates: start: 20081014
  8. IRINOTECAN HCL [Suspect]
     Indication: COLORECTAL CANCER
     Dosage: 180 MG/M2, Q14D, OTO
     Route: 042
     Dates: start: 20081014
  9. CALCIUM FOLINATE [Suspect]
     Indication: COLORECTAL CANCER
     Dosage: 820 MG, OTO, Q14D
     Route: 042
     Dates: start: 20081014
  10. FLUOROURACIL [Suspect]
     Dosage: 4920 MG, X3D, Q14D
     Route: 041
     Dates: start: 20081014
  11. AXITINIB [Suspect]
     Indication: COLORECTAL CANCER
     Dosage: 5 MG, 2X/DAY
     Route: 048
     Dates: start: 20081014, end: 20090118

REACTIONS (2)
  - PULMONARY EMBOLISM [None]
  - PNEUMOTHORAX [None]
